FAERS Safety Report 5318539-3 (Version None)
Quarter: 2007Q2

REPORT INFORMATION
  Report Type: 
  Country: None (occurrence: None)
  Receive Date: 20070501
  Receipt Date: 20070417
  Transmission Date: 20071010
  Serious: Yes (Hospitalization)
  Sender: FDA-Public Use
  Company Number: CIP07000299

PATIENT
  Age: 76 Year
  Sex: Male
  Weight: 90.01 kg

DRUGS (3)
  1. ACTONEL [Suspect]
     Indication: OSTEOPOROSIS
     Dosage: OFF AND ON, ORAL
     Route: 048
     Dates: start: 20061001, end: 20061201
  2. PREDNISONE [Suspect]
     Indication: ECZEMA
     Dosage: 5-20 MG DAILY, ORAL
     Route: 048
     Dates: start: 19950101, end: 20061101
  3. AZATHIOPRINE [Suspect]
     Indication: ECZEMA
     Dosage: 100-300 ORAL
     Route: 048
     Dates: start: 19950101

REACTIONS (29)
  - APPLICATION SITE IRRITATION [None]
  - APPLICATION SITE PRURITUS [None]
  - BURNING SENSATION [None]
  - CLAVICLE FRACTURE [None]
  - CORONARY ARTERY OCCLUSION [None]
  - DRY SKIN [None]
  - DYSPHAGIA [None]
  - DYSPHONIA [None]
  - ERYTHEMA [None]
  - FALL [None]
  - GASTRIC HAEMORRHAGE [None]
  - HAEMOPTYSIS [None]
  - IATROGENIC INJURY [None]
  - INAPPROPRIATE SCHEDULE OF DRUG ADMINISTRATION [None]
  - JOINT STIFFNESS [None]
  - JOINT SWELLING [None]
  - LARGE INTESTINAL HAEMORRHAGE [None]
  - MALAISE [None]
  - OEDEMA PERIPHERAL [None]
  - OESOPHAGEAL HAEMORRHAGE [None]
  - PAIN IN EXTREMITY [None]
  - PROCEDURAL COMPLICATION [None]
  - PRODUCTIVE COUGH [None]
  - RASH ERYTHEMATOUS [None]
  - RASH PRURITIC [None]
  - SKIN CANCER [None]
  - SKIN FISSURES [None]
  - THROMBOSIS [None]
  - TREATMENT NONCOMPLIANCE [None]
